FAERS Safety Report 6102381-X (Version None)
Quarter: 2009Q1

REPORT INFORMATION
  Report Type: 
  Country: None (occurrence: None)
  Receive Date: 20090304
  Receipt Date: 20090219
  Transmission Date: 20090719
  Serious: Yes (Other)
  Sender: FDA-Public Use
  Company Number: JP-ROCHE-617218

PATIENT
  Sex: Female
  Weight: 52.2 kg

DRUGS (3)
  1. FLUMAZENIL [Suspect]
     Indication: DELAYED RECOVERY FROM ANAESTHESIA
     Route: 042
     Dates: start: 20090129, end: 20090129
  2. DORMICUM [Concomitant]
     Route: 042
     Dates: start: 20090129, end: 20090129
  3. GLUCAGON [Concomitant]
     Route: 042
     Dates: start: 20090129, end: 20090129

REACTIONS (1)
  - SHOCK [None]
